FAERS Safety Report 9157333 (Version 1)
Quarter: 2013Q1

REPORT INFORMATION
  Report Type: Spontaneous
  Country: US (occurrence: None)
  Receive Date: 20130308
  Receipt Date: 20130308
  Transmission Date: 20140127
  Serious: Yes (Death)
  Sender: FDA-Public Use
  Company Number: 2013AP003360

PATIENT
  Age: 2 Decade
  Sex: Female

DRUGS (3)
  1. ALPRAZOLAM [Suspect]
  2. OXYCODONE [Suspect]
  3. CODEINE [Suspect]

REACTIONS (1)
  - Death [None]
